FAERS Safety Report 8535550-X (Version None)
Quarter: 2012Q3

REPORT INFORMATION
  Report Type: 
  Country: None (occurrence: None)
  Receive Date: 20120717
  Receipt Date: 20120717
  Transmission Date: 20120928
  Serious: Yes (Hospitalization)
  Sender: FDA-Public Use
  Company Number: None

PATIENT
  Sex: Female
  Weight: 81 kg

DRUGS (3)
  1. ETOPOSIDE [Suspect]
     Dosage: 725 MG
  2. BLEOMYCIN SULFATE [Suspect]
     Dosage: 30 MG
  3. CISPLATIN [Suspect]
     Dosage: 195 MG

REACTIONS (2)
  - WHITE BLOOD CELL COUNT DECREASED [None]
  - NEUTROPHIL COUNT DECREASED [None]
